FAERS Safety Report 5919489-1 (Version None)
Quarter: 2008Q4

REPORT INFORMATION
  Report Type: 
  Country: None (occurrence: None)
  Receive Date: 20081015
  Receipt Date: 20081008
  Transmission Date: 20090506
  Serious: Yes (Death)
  Sender: FDA-Public Use
  Company Number: US-AVENTIS-200816694US

PATIENT
  Sex: Female

DRUGS (3)
  1. TAXOTERE [Suspect]
     Dosage: DOSE: UNK
     Dates: start: 20080901, end: 20080901
  2. ADRIAMYCIN PFS [Suspect]
     Dosage: DOSE: UNK
     Dates: start: 20080901, end: 20080901
  3. CYTOXAN [Suspect]
     Dosage: DOSE: UNK
     Dates: start: 20080901, end: 20080901

REACTIONS (2)
  - INTESTINAL PERFORATION [None]
  - SEPSIS [None]
